FAERS Safety Report 4694922-4 (Version None)
Quarter: 2005Q2

REPORT INFORMATION
  Report Type: 
  Country: None (occurrence: None)
  Receive Date: 20050620
  Receipt Date: 20050609
  Transmission Date: 20051028
  Serious: Yes (Other)
  Sender: FDA-Public Use
  Company Number: 2005085973

PATIENT
  Age: 54 Year
  Sex: Female
  Weight: 108.8633 kg

DRUGS (7)
  1. SUDAFED SINUS HEADACHE CAPLETS (PARACETAMOL, PSEUDOEPHEDRINE) [Suspect]
     Indication: SINUS HEADACHE
     Dosage: 1/2-2 CAPLETS 4-6 TIMES PER DAY, ORAL
     Route: 048
     Dates: start: 20050501
  2. VENLAFAXINE HCL [Concomitant]
  3. LAMOTRIGINE [Concomitant]
  4. OLANZAPINE [Concomitant]
  5. BUSPIRONE HCL [Concomitant]
  6. RABEPRAZOLE SODIUM [Concomitant]
  7. LETROZOLE (LETROZOLE) [Concomitant]

REACTIONS (4)
  - DEREALISATION [None]
  - DRUG DEPENDENCE [None]
  - MALAISE [None]
  - NAUSEA [None]
